FAERS Safety Report 7250853-7 (Version None)
Quarter: 2011Q1

REPORT INFORMATION
  Report Type: 
  Country: None (occurrence: None)
  Receive Date: 20110128
  Receipt Date: 20100906
  Transmission Date: 20110831
  Serious: Yes (Other)
  Sender: FDA-Public Use
  Company Number: DE-ASTRAZENECA-2010SE42735

PATIENT
  Age: 22616 Day
  Sex: Female

DRUGS (2)
  1. ANTRA [Suspect]
     Route: 048
     Dates: start: 20100904
  2. BISOPROLOL [Concomitant]

REACTIONS (1)
  - MELAENA [None]
